FAERS Safety Report 15185974 (Version 1)
Quarter: 2018Q3

REPORT INFORMATION
  Report Type: Report from Study
  Country: US (occurrence: US)
  Receive Date: 20180723
  Receipt Date: 20180723
  Transmission Date: 20181010
  Serious: Yes (Death, Hospitalization, Other)
  Sender: FDA-Public Use
  Company Number: US-EXELIXIS-CABO-17011245

PATIENT
  Sex: Male

DRUGS (10)
  1. NIVOLUMAB [Suspect]
     Active Substance: NIVOLUMAB
  2. NYSTATIN. [Concomitant]
     Active Substance: NYSTATIN
     Indication: RASH
  3. SYNTHROID [Concomitant]
     Active Substance: LEVOTHYROXINE SODIUM
  4. PREDNISONE. [Concomitant]
     Active Substance: PREDNISONE
  5. APIXABAN [Concomitant]
     Active Substance: APIXABAN
  6. MARINOL [Concomitant]
     Active Substance: DRONABINOL
  7. CABOMETYX [Suspect]
     Active Substance: CABOZANTINIB S-MALATE
     Indication: RENAL CANCER
     Dosage: 40 MG, QD
     Route: 048
     Dates: start: 20170123
  8. CABOMETYX [Suspect]
     Active Substance: CABOZANTINIB S-MALATE
     Dosage: 40 MG, ALTERNATING WITH 20 MG
     Route: 048
     Dates: start: 20170518
  9. CABOMETYX [Suspect]
     Active Substance: CABOZANTINIB S-MALATE
     Dosage: 40 MG, QD
     Route: 048
     Dates: start: 20170608, end: 20170926
  10. EMLA [Concomitant]
     Active Substance: LIDOCAINE\PRILOCAINE

REACTIONS (21)
  - Tumour thrombosis [Unknown]
  - Metastases to liver [Unknown]
  - Palmar-plantar erythrodysaesthesia syndrome [Unknown]
  - Abdominal distension [Unknown]
  - Pyrexia [Unknown]
  - Dyspnoea [Unknown]
  - Back pain [Unknown]
  - Metastases to lung [Unknown]
  - Constipation [Unknown]
  - Dyspepsia [Unknown]
  - Cough [Unknown]
  - Nausea [Unknown]
  - Abdominal pain upper [Unknown]
  - Malignant neoplasm progression [Fatal]
  - Asthenia [Unknown]
  - Hepatic function abnormal [Unknown]
  - Portal vein thrombosis [Unknown]
  - Decreased activity [Unknown]
  - Oedema peripheral [Unknown]
  - Oedema [Unknown]
  - Fatigue [Unknown]
